FAERS Safety Report 22360032 (Version 2)
Quarter: 2023Q2

REPORT INFORMATION
  Report Type: Spontaneous
  Country: US (occurrence: US)
  Receive Date: 20230524
  Receipt Date: 20230531
  Transmission Date: 20230721
  Serious: Yes (Hospitalization, Other)
  Sender: FDA-Public Use
  Company Number: US-PFIZER INC-PV202300090195

PATIENT
  Age: 60 Year
  Sex: Male

DRUGS (2)
  1. FLUCONAZOLE [Suspect]
     Active Substance: FLUCONAZOLE
     Indication: Oropharyngeal candidiasis
     Dosage: UNK
     Route: 048
  2. NYSTATIN [Concomitant]
     Active Substance: NYSTATIN
     Indication: Oropharyngeal candidiasis
     Dosage: UNK

REACTIONS (3)
  - Electrocardiogram QT prolonged [Recovered/Resolved]
  - Delirium [Recovering/Resolving]
  - Hypotension [Recovering/Resolving]
